FAERS Safety Report 14978414 (Version 2)
Quarter: 2018Q2

REPORT INFORMATION
  Report Type: Report from Study
  Country: MX (occurrence: MX)
  Receive Date: 20180606
  Receipt Date: 20180619
  Transmission Date: 20180711
  Serious: Yes (Other)
  Sender: FDA-Public Use
  Company Number: PHHY2018MX013980

PATIENT
  Age: 13 Year
  Sex: Male
  Weight: 42 kg

DRUGS (3)
  1. TRILEPTAL [Suspect]
     Active Substance: OXCARBAZEPINE
     Indication: SEIZURE
  2. KEPPRA [Concomitant]
     Active Substance: LEVETIRACETAM
     Indication: SEIZURE
     Dosage: 1.5 DF (MORNING AND NIGHT), QD
     Route: 048
     Dates: start: 20170801
  3. TRILEPTAL [Suspect]
     Active Substance: OXCARBAZEPINE
     Indication: FEELING OF RELAXATION
     Dosage: 1.5 DF, QD (IN THE MORNING AND IN THE NIGHT)
     Route: 048

REACTIONS (2)
  - Seizure [Recovered/Resolved]
  - Wrong technique in product usage process [Unknown]

NARRATIVE: CASE EVENT DATE: 20180519
